FAERS Safety Report 12196685 (Version 3)
Quarter: 2016Q1

REPORT INFORMATION
  Report Type: Spontaneous
  Country: IT (occurrence: IT)
  Receive Date: 20160321
  Receipt Date: 20160331
  Transmission Date: 20160526
  Serious: Yes (Other)
  Sender: FDA-Public Use
  Company Number: IT-TEVA-643849ACC

PATIENT
  Age: 38 Year
  Sex: Female

DRUGS (4)
  1. DOCETAXEL ANHYDROUS [Suspect]
     Active Substance: DOCETAXEL ANHYDROUS
     Indication: PRODUCT USED FOR UNKNOWN INDICATION
     Dates: start: 20120217, end: 20120309
  2. PEMETREXED [Suspect]
     Active Substance: PEMETREXED
     Dates: start: 20120402, end: 20120807
  3. CISPLATIN. [Suspect]
     Active Substance: CISPLATIN
     Indication: PRODUCT USED FOR UNKNOWN INDICATION
     Dates: start: 20120217, end: 20120309
  4. CISPLATIN. [Suspect]
     Active Substance: CISPLATIN
     Dates: start: 20120402, end: 2012

REACTIONS (3)
  - Ototoxicity [Unknown]
  - Chronic kidney disease [Not Recovered/Not Resolved]
  - Nephropathy toxic [Not Recovered/Not Resolved]

NARRATIVE: CASE EVENT DATE: 20141015
